FAERS Safety Report 16006649 (Version 7)
Quarter: 2019Q3

REPORT INFORMATION
  Report Type: Spontaneous
  Country: PL (occurrence: PL)
  Receive Date: 20190226
  Receipt Date: 20190903
  Transmission Date: 20191004
  Serious: Yes (Hospitalization, Other)
  Sender: FDA-Public Use
  Company Number: PL-MYLANLABS-2019M1016533

PATIENT
  Age: 65 Year
  Sex: Female

DRUGS (42)
  1. VALSARTAN. [Suspect]
     Active Substance: VALSARTAN
     Indication: SOMATIC SYMPTOM DISORDER
  2. MONTELUKAST [Suspect]
     Active Substance: MONTELUKAST SODIUM
     Indication: SOMATIC SYMPTOM DISORDER
     Dosage: UNK
     Route: 065
  3. MIDAZOLAM [Suspect]
     Active Substance: MIDAZOLAM HYDROCHLORIDE
     Indication: ANXIETY
  4. ZOLPIDEM [Suspect]
     Active Substance: ZOLPIDEM TARTRATE
     Indication: SLEEP DISORDER
     Dosage: UNK,SOPORIFICALLY
     Route: 065
  5. CLONAZEPAM. [Suspect]
     Active Substance: CLONAZEPAM
     Indication: FEAR
     Dosage: UNK
     Route: 065
  6. PAROXETINE. [Suspect]
     Active Substance: PAROXETINE
     Indication: AFFECTIVE DISORDER
     Dosage: UNK
     Route: 065
  7. MIDAZOLAM [Suspect]
     Active Substance: MIDAZOLAM HYDROCHLORIDE
     Indication: SLEEP DISORDER
     Dosage: UNK
     Route: 065
  8. OLANZAPINE. [Suspect]
     Active Substance: OLANZAPINE
     Indication: ANXIETY DISORDER
     Dosage: PRN, AD HOC
     Route: 065
  9. VENLAFAXINE [Suspect]
     Active Substance: VENLAFAXINE HYDROCHLORIDE
     Indication: BIPOLAR DISORDER
     Dosage: UP TO 300 MG/DAY
     Route: 065
  10. FLUTICASONE. [Suspect]
     Active Substance: FLUTICASONE
     Indication: SOMATIC SYMPTOM DISORDER
  11. NEBIVOLOL. [Suspect]
     Active Substance: NEBIVOLOL
     Indication: SOMATIC SYMPTOM DISORDER
     Dosage: UNK
     Route: 065
  12. HYDROCHLOROTHIAZIDE. [Suspect]
     Active Substance: HYDROCHLOROTHIAZIDE
     Indication: SOMATIC SYMPTOM DISORDER
     Dosage: UNK
     Route: 005
  13. SALMETEROL [Suspect]
     Active Substance: SALMETEROL
     Indication: SOMATIC SYMPTOM DISORDER
     Dosage: UNK
     Route: 065
  14. ALPRAZOLAM. [Suspect]
     Active Substance: ALPRAZOLAM
     Indication: ANXIETY DISORDER
     Dosage: UNK UNK, PRN
     Route: 065
  15. PAROXETINE. [Suspect]
     Active Substance: PAROXETINE
     Indication: BIPOLAR DISORDER
     Dosage: QD (UP TO 40 MG/DAY)
     Route: 065
  16. VENLAFAXINE [Suspect]
     Active Substance: VENLAFAXINE HYDROCHLORIDE
     Indication: AFFECTIVE DISORDER
     Dosage: UNK
     Route: 065
  17. ZOLPIDEM [Suspect]
     Active Substance: ZOLPIDEM TARTRATE
     Indication: INSOMNIA
  18. OLANZAPINE. [Suspect]
     Active Substance: OLANZAPINE
     Indication: FEAR
     Dosage: UNK
  19. BUPROPION. [Concomitant]
     Active Substance: BUPROPION
     Indication: PRODUCT USED FOR UNKNOWN INDICATION
     Dosage: QD (UP TO 300MG/DAY)
     Route: 065
  20. FLUTICASONE. [Concomitant]
     Active Substance: FLUTICASONE
     Dosage: UNK
  21. QUETIAPINE. [Suspect]
     Active Substance: QUETIAPINE
     Indication: ANXIETY
     Dosage: UNK
     Route: 065
  22. QUETIAPINE. [Suspect]
     Active Substance: QUETIAPINE
     Indication: BIPOLAR DISORDER
  23. HYDROCHLOROTHIAZIDE. [Suspect]
     Active Substance: HYDROCHLOROTHIAZIDE
     Indication: SOMATIC DYSFUNCTION
     Dosage: UNK
     Route: 005
  24. LAMOTRIGINE. [Suspect]
     Active Substance: LAMOTRIGINE
     Indication: ANXIETY
  25. ALPRAZOLAM. [Suspect]
     Active Substance: ALPRAZOLAM
     Indication: ANXIETY
  26. ESOMEPRAZOLE SODIUM. [Suspect]
     Active Substance: ESOMEPRAZOLE SODIUM
     Indication: SOMATIC DYSFUNCTION
     Dosage: UNK
     Route: 065
  27. ESOMEPRAZOLE SODIUM. [Suspect]
     Active Substance: ESOMEPRAZOLE SODIUM
     Indication: SOMATIC SYMPTOM DISORDER
  28. CLOBETASOL [Suspect]
     Active Substance: CLOBETASOL
     Indication: SOMATIC DYSFUNCTION
     Dosage: UNK
     Route: 061
  29. LAMOTRIGINE. [Suspect]
     Active Substance: LAMOTRIGINE
     Indication: AFFECTIVE DISORDER
     Dosage: UNK
     Route: 065
  30. LAMOTRIGINE. [Suspect]
     Active Substance: LAMOTRIGINE
     Indication: BIPOLAR DISORDER
     Dosage: GRADUALLY INCREASED DOSES UP TO 200 MG/DAY
     Route: 065
  31. CLONAZEPAM. [Suspect]
     Active Substance: CLONAZEPAM
     Indication: ANXIETY DISORDER
     Dosage: UNK, PRN
     Route: 065
  32. CLONAZEPAM. [Suspect]
     Active Substance: CLONAZEPAM
     Indication: ANXIETY
  33. ZOLPIDEM [Suspect]
     Active Substance: ZOLPIDEM TARTRATE
     Indication: ANXIETY
     Dosage: UNK
  34. OLANZAPINE. [Suspect]
     Active Substance: OLANZAPINE
     Indication: ANXIETY
  35. PAROXETINE. [Suspect]
     Active Substance: PAROXETINE
     Indication: ANXIETY
  36. QUETIAPINE. [Suspect]
     Active Substance: QUETIAPINE
     Indication: AFFECTIVE DISORDER
     Dosage: 200 MG PER DAY
     Route: 065
  37. VENLAFAXINE [Suspect]
     Active Substance: VENLAFAXINE HYDROCHLORIDE
     Indication: ANXIETY
  38. VALSARTAN. [Suspect]
     Active Substance: VALSARTAN
     Indication: SOMATIC DYSFUNCTION
     Dosage: UNK
     Route: 065
  39. FLUTICASONE. [Suspect]
     Active Substance: FLUTICASONE
     Indication: SOMATIC DYSFUNCTION
     Dosage: UNK
     Route: 065
  40. HYDROCHLOROTHIAZIDE. [Suspect]
     Active Substance: HYDROCHLOROTHIAZIDE
     Dosage: UNK
     Route: 065
  41. CLOBETASOL [Suspect]
     Active Substance: CLOBETASOL
     Indication: SOMATIC SYMPTOM DISORDER
     Dosage: UNK
     Route: 065
  42. ALPRAZOLAM. [Suspect]
     Active Substance: ALPRAZOLAM
     Indication: FEAR
     Dosage: UNK
     Route: 065

REACTIONS (9)
  - Hepatic enzyme increased [Recovering/Resolving]
  - Product use in unapproved indication [Unknown]
  - Off label use [Unknown]
  - Therapeutic product effect incomplete [Unknown]
  - Anxiety [Recovering/Resolving]
  - Drug-induced liver injury [Recovered/Resolved]
  - Insomnia [Recovering/Resolving]
  - Drug ineffective [Unknown]
  - Depression [Recovering/Resolving]
